FAERS Safety Report 8056021-3 (Version None)
Quarter: 2012Q1

REPORT INFORMATION
  Report Type: 
  Country: None (occurrence: None)
  Receive Date: 20120119
  Receipt Date: 20120109
  Transmission Date: 20120608
  Serious: Yes (Other)
  Sender: FDA-Public Use
  Company Number: US-BAYER-2011-038627

PATIENT
  Age: 29 Year
  Sex: Female
  Weight: 66 kg

DRUGS (6)
  1. ORTHO TRI-CYCLEN [Concomitant]
  2. PROTONIX [Concomitant]
  3. YAZ [Suspect]
     Indication: PREMENSTRUAL SYNDROME
     Dosage: UNK
     Route: 048
     Dates: start: 20090201, end: 20090801
  4. SINGULAIR [Concomitant]
     Indication: ASTHMA
     Route: 048
  5. COMBIVENT [Concomitant]
     Indication: ASTHMA
     Dosage: UNK UNK, PRN
     Route: 055
  6. ADVAIR DISKUS 100/50 [Concomitant]
     Indication: ASTHMA
     Dosage: 250/50
     Route: 055

REACTIONS (15)
  - GALLBLADDER DISORDER [None]
  - BILIARY DYSKINESIA [None]
  - VOMITING [None]
  - DEPRESSION [None]
  - ANXIETY [None]
  - ABDOMINAL DISTENSION [None]
  - DIARRHOEA [None]
  - EATING DISORDER [None]
  - FLATULENCE [None]
  - MENTAL DISORDER [None]
  - WATER POLLUTION [None]
  - CONSTIPATION [None]
  - SCAR [None]
  - DYSPEPSIA [None]
  - PAIN [None]
